FAERS Safety Report 19932504 (Version 1)
Quarter: 2021Q4

REPORT INFORMATION
  Report Type: Spontaneous
  Country: US (occurrence: US)
  Receive Date: 20211007
  Receipt Date: 20211007
  Transmission Date: 20220303
  Serious: Yes (Other)
  Sender: FDA-Public Use
  Company Number: None

PATIENT
  Age: 57 Year
  Sex: Female
  Weight: 52 kg

DRUGS (16)
  1. PRIVIGEN [Suspect]
     Active Substance: HUMAN IMMUNOGLOBULIN G
     Indication: Hypogammaglobulinaemia
     Dosage: ?          OTHER FREQUENCY:EVERY 4 WEEKS;
     Route: 041
     Dates: start: 20200106
  2. Solu-Cortef 100 mg IV [Concomitant]
  3. Diphenhydramine 25 mg po [Concomitant]
  4. acetaminophen 650 mg po [Concomitant]
  5. akwa tears both eyes [Concomitant]
  6. amlodipine 2.5 mg po [Concomitant]
  7. aspirin ec 81 mg po [Concomitant]
  8. Oc-Cal +D po [Concomitant]
  9. Docusate sodium 100 mg po [Concomitant]
  10. exemestane 25 mg po [Concomitant]
  11. excedrin migraine po [Concomitant]
  12. hydroxyzine 25 mg po [Concomitant]
  13. ibuprofen 200 mg po [Concomitant]
  14. ipratropium nasal [Concomitant]
  15. synthroid 50 mcg po [Concomitant]
  16. trazedone 50 mg po [Concomitant]

REACTIONS (1)
  - Anaphylactic reaction [None]

NARRATIVE: CASE EVENT DATE: 20210928
